FAERS Safety Report 18541156 (Version 2)
Quarter: 2021Q2

REPORT INFORMATION
  Report Type: Spontaneous
  Country: US (occurrence: US)
  Receive Date: 20201124
  Receipt Date: 20210521
  Transmission Date: 20210717
  Serious: No
  Sender: FDA-Public Use
  Company Number: US-PFIZER INC-2020402031

PATIENT
  Age: 41 Year
  Sex: Female

DRUGS (1)
  1. SYNAREL [Suspect]
     Active Substance: NAFARELIN ACETATE
     Indication: ENDOMETRIOSIS
     Dosage: 1 DF, 1X/DAY FOR 30 DAYS
     Route: 045

REACTIONS (4)
  - Nervous system disorder [Unknown]
  - Off label use [Unknown]
  - Musculoskeletal disorder [Unknown]
  - Neuralgia [Unknown]
